FAERS Safety Report 7843462-X (Version None)
Quarter: 2011Q4

REPORT INFORMATION
  Report Type: 
  Country: None (occurrence: None)
  Receive Date: 20111025
  Receipt Date: 20111021
  Transmission Date: 20120403
  Serious: Yes (Hospitalization)
  Sender: FDA-Public Use
  Company Number: US-VERTEX PHARMACEUTICALS INC.-AE-2011-001514

PATIENT
  Sex: Male

DRUGS (9)
  1. RIBAVIRIN [Concomitant]
     Route: 048
  2. PROCRIT [Concomitant]
     Route: 058
  3. ASPIRIN [Concomitant]
     Route: 048
  4. INCIVEK [Suspect]
     Indication: HEPATITIS C
     Route: 048
     Dates: start: 20110702
  5. LEVOTHYROXINE SODIUM [Concomitant]
     Route: 048
  6. PEGASYS [Concomitant]
     Indication: HEPATITIS C
     Route: 058
     Dates: start: 20110629
  7. CYMBALTA [Concomitant]
     Route: 048
  8. OMEPRAZOLE [Concomitant]
     Route: 048
  9. RIBAVIRIN [Concomitant]
     Indication: HEPATITIS C
     Route: 048
     Dates: start: 20110702

REACTIONS (4)
  - PLATELET COUNT DECREASED [None]
  - HAEMOGLOBIN DECREASED [None]
  - FATIGUE [None]
  - BLOOD CREATININE INCREASED [None]
